FAERS Safety Report 20166617 (Version 1)
Quarter: 2021Q4

REPORT INFORMATION
  Report Type: Spontaneous
  Country: US (occurrence: US)
  Receive Date: 20211209
  Receipt Date: 20211209
  Transmission Date: 20220303
  Serious: No
  Sender: FDA-Public Use
  Company Number: US-009507513-2112USA003381

PATIENT
  Age: 79 Year
  Sex: Female

DRUGS (2)
  1. KEYTRUDA [Suspect]
     Active Substance: PEMBROLIZUMAB
     Indication: Myxofibrosarcoma
     Dosage: 1 DOSAGE FORM, ONCE
  2. MELPHALAN [Suspect]
     Active Substance: MELPHALAN
     Indication: Myxofibrosarcoma
     Dosage: WITHIN 2 WEEKS

REACTIONS (1)
  - Off label use [Unknown]
